FAERS Safety Report 11410337 (Version 2)
Quarter: 2015Q4

REPORT INFORMATION
  Report Type: Spontaneous
  Country: US (occurrence: US)
  Receive Date: 20150824
  Receipt Date: 20151125
  Transmission Date: 20160304
  Serious: No
  Sender: FDA-Public Use
  Company Number: US-DRREDDYS-USA/USA/15/0048127

PATIENT
  Sex: Female

DRUGS (1)
  1. SUMATRIPTAN INJECTION USP, 6 MG/0.5 ML [Suspect]
     Active Substance: SUMATRIPTAN
     Indication: MIGRAINE
     Dosage: TO BE INJECTED AS NEEDED. MIGHT ADMINISTER 2 DOSES IN 24 HOURS.
     Route: 065

REACTIONS (3)
  - Drug dose omission [Unknown]
  - Product physical issue [Unknown]
  - No adverse event [Unknown]
